FAERS Safety Report 20910924 (Version 6)
Quarter: 2023Q1

REPORT INFORMATION
  Report Type: Spontaneous
  Country: US (occurrence: US)
  Receive Date: 20220603
  Receipt Date: 20230309
  Transmission Date: 20230417
  Serious: Yes (Other)
  Sender: FDA-Public Use
  Company Number: US-BRISTOL-MYERS SQUIBB COMPANY-2022-035256

PATIENT
  Age: 66 Year
  Sex: Male

DRUGS (2)
  1. POMALYST [Suspect]
     Active Substance: POMALIDOMIDE
     Indication: Product used for unknown indication
     Dosage: DAILY
     Route: 048
     Dates: start: 201911
  2. POMALYST [Suspect]
     Active Substance: POMALIDOMIDE
     Route: 048
     Dates: start: 20210204

REACTIONS (8)
  - Neuropathy peripheral [Unknown]
  - Upper respiratory tract infection [Unknown]
  - Joint swelling [Unknown]
  - Arthritis [Unknown]
  - Full blood count decreased [Unknown]
  - Illness [Unknown]
  - Platelet count decreased [Unknown]
  - Contusion [Unknown]

NARRATIVE: CASE EVENT DATE: 20220427
